FAERS Safety Report 6808247-1 (Version None)
Quarter: 2010Q2

REPORT INFORMATION
  Report Type: 
  Country: None (occurrence: None)
  Receive Date: 20100629
  Receipt Date: 20090430
  Transmission Date: 20101027
  Serious: No
  Sender: FDA-Public Use
  Company Number: US-PFIZER INC-2009208392

PATIENT
  Sex: Female
  Weight: 49.887 kg

DRUGS (4)
  1. TIKOSYN [Suspect]
     Indication: ATRIAL FIBRILLATION
     Dosage: 250 UG, 2X/DAY
     Dates: start: 20090101
  2. WARFARIN [Concomitant]
     Dosage: 5 MG, UNK
  3. LANOXIN [Concomitant]
     Dosage: UNK
  4. METOPROLOL [Concomitant]
     Dosage: 0.25 MG, 2X/DAY

REACTIONS (1)
  - DRUG INEFFECTIVE [None]
